FAERS Safety Report 19909439 (Version 1)
Quarter: 2021Q4

REPORT INFORMATION
  Report Type: Spontaneous
  Country: US (occurrence: US)
  Receive Date: 20211001
  Receipt Date: 20211001
  Transmission Date: 20220303
  Serious: No
  Sender: FDA-Public Use
  Company Number: US-AMARIN PHARMA, INC.-2021AMR000319

PATIENT
  Age: 58 Year
  Sex: Male
  Weight: 104.42 kg

DRUGS (2)
  1. VASCEPA [Suspect]
     Active Substance: ICOSAPENT ETHYL
     Indication: Cardiovascular event prophylaxis
     Dates: start: 2019
  2. VASCEPA [Suspect]
     Active Substance: ICOSAPENT ETHYL

REACTIONS (7)
  - Dyspepsia [Unknown]
  - Eructation [Unknown]
  - Gastrooesophageal reflux disease [Unknown]
  - Intentional underdose [Unknown]
  - Product odour abnormal [Unknown]
  - Product storage error [Unknown]
  - Product coating issue [Unknown]

NARRATIVE: CASE EVENT DATE: 20210401
